FAERS Safety Report 12735956 (Version 1)
Quarter: 2016Q3

REPORT INFORMATION
  Report Type: Spontaneous
  Country: US (occurrence: US)
  Receive Date: 20160912
  Receipt Date: 20160912
  Transmission Date: 20161109
  Serious: Yes (Other)
  Sender: FDA-Public Use
  Company Number: US-BAYER-2016-175952

PATIENT
  Sex: Female

DRUGS (1)
  1. CLIMARA PRO [Suspect]
     Active Substance: ESTRADIOL\LEVONORGESTREL
     Dosage: 0.045/0.015 MG PER DAY
     Route: 062
     Dates: start: 2016, end: 201608

REACTIONS (4)
  - Product adhesion issue [None]
  - Device colour issue [None]
  - Uterine haemorrhage [None]
  - Product use issue [None]

NARRATIVE: CASE EVENT DATE: 2016
